FAERS Safety Report 6298830-7 (Version None)
Quarter: 2009Q3

REPORT INFORMATION
  Report Type: 
  Country: None (occurrence: None)
  Receive Date: 20090805
  Receipt Date: 20090805
  Transmission Date: 20100115
  Serious: Yes (Other)
  Sender: FDA-Public Use
  Company Number: None

PATIENT
  Age: 75 Year
  Sex: Female
  Weight: 60.782 kg

DRUGS (2)
  1. ELOXATIN [Suspect]
     Indication: CHEMOTHERAPY
     Dosage: 100 MG IV OVER 2HRS Q EVERY OTHER WK
     Route: 042
     Dates: start: 20090420
  2. ELOXATIN [Suspect]
     Indication: CHEMOTHERAPY
     Dosage: 100 MG IV OVER 2HRS Q EVERY OTHER WK
     Route: 042
     Dates: start: 20090803

REACTIONS (4)
  - CHEST PAIN [None]
  - ERYTHEMA [None]
  - PRURITUS [None]
  - RASH [None]
